FAERS Safety Report 14616419 (Version 2)
Quarter: 2018Q2

REPORT INFORMATION
  Report Type: Spontaneous
  Country: FR (occurrence: FR)
  Receive Date: 20180309
  Receipt Date: 20180420
  Transmission Date: 20180711
  Serious: Yes (Other)
  Sender: FDA-Public Use
  Company Number: FR-009507513-1803FRA001350

PATIENT
  Age: 83 Year
  Sex: Male

DRUGS (10)
  1. INEGY [Suspect]
     Active Substance: EZETIMIBE\SIMVASTATIN
     Route: 048
  2. MESTINON [Concomitant]
     Active Substance: PYRIDOSTIGMINE BROMIDE
  3. COMBODART [Concomitant]
     Active Substance: DUTASTERIDE\TAMSULOSIN
  4. SERETIDE [Concomitant]
     Active Substance: FLUTICASONE PROPIONATE\SALMETEROL XINAFOATE
  5. LOXEN [Concomitant]
  6. INEXIUM (ESOMEPRAZOLE MAGNESIUM) [Concomitant]
     Active Substance: ESOMEPRAZOLE MAGNESIUM
  7. TAREG [Concomitant]
     Active Substance: VALSARTAN
  8. KARDEGIC [Concomitant]
     Active Substance: ASPIRIN DL-LYSINE
  9. TRANSIPEG [Concomitant]
     Active Substance: POLYETHYLENE GLYCOL 3350
  10. LASILIX [Concomitant]
     Active Substance: FUROSEMIDE

REACTIONS (2)
  - Myasthenia gravis [Unknown]
  - Muscle spasms [Unknown]

NARRATIVE: CASE EVENT DATE: 201703
